FAERS Safety Report 23912490 (Version 1)
Quarter: 2024Q2

REPORT INFORMATION
  Report Type: Report from Study
  Country: US (occurrence: US)
  Receive Date: 20240528
  Receipt Date: 20240528
  Transmission Date: 20240716
  Serious: Yes (Death, Hospitalization)
  Sender: FDA-Public Use
  Company Number: US-ABBVIE-5314962

PATIENT
  Age: 80 Year
  Sex: Male

DRUGS (4)
  1. VENCLEXTA [Suspect]
     Active Substance: VENETOCLAX
     Indication: Chronic myelomonocytic leukaemia (in remission)
     Dosage: TAKE 100 MG ONE TAB ON DAY ONE?STRENGTH: 100 MILLIGRAM
     Route: 048
  2. VENCLEXTA [Suspect]
     Active Substance: VENETOCLAX
     Indication: Chronic myelomonocytic leukaemia (in remission)
     Dosage: STRENGTH: 100 MILLIGRAM?100 MG TWO TABLETS ON DAY TWO
     Route: 048
  3. VENCLEXTA [Suspect]
     Active Substance: VENETOCLAX
     Indication: Chronic myelomonocytic leukaemia (in remission)
     Dosage: TAKE 100 MG THREE TAB ON DAY THREE?STRENGTH: 100 MILLIGRAM
     Route: 048
  4. VENCLEXTA [Suspect]
     Active Substance: VENETOCLAX
     Indication: Chronic myelomonocytic leukaemia (in remission)
     Dosage: FOUR TAB BY MOUTH DAILY FOR 21 DAYS?STRENGTH: 100 MILLIGRAM
     Route: 048

REACTIONS (4)
  - Death [Fatal]
  - Unevaluable event [Unknown]
  - Off label use [Unknown]
  - Hospitalisation [Unknown]

NARRATIVE: CASE EVENT DATE: 20231111
